FAERS Safety Report 8775312 (Version 2)
Quarter: 2013Q4

REPORT INFORMATION
  Report Type: Spontaneous
  Country: US (occurrence: US)
  Receive Date: 20120909
  Receipt Date: 20131101
  Transmission Date: 20140711
  Serious: No
  Sender: FDA-Public Use
  Company Number: US-009507513-1209USA001223

PATIENT
  Sex: Female

DRUGS (1)
  1. DULERA [Suspect]
     Dosage: 100MCG/5MCG

REACTIONS (3)
  - Swollen tongue [Unknown]
  - Oedema mouth [Unknown]
  - Pruritus [Unknown]
